FAERS Safety Report 17327133 (Version 3)
Quarter: 2020Q3

REPORT INFORMATION
  Report Type: Report from Study
  Country: AU (occurrence: AU)
  Receive Date: 20200127
  Receipt Date: 20200911
  Transmission Date: 20201102
  Serious: Yes (Hospitalization)
  Sender: FDA-Public Use
  Company Number: AU-EMD SERONO-9141836

PATIENT
  Age: 47 Year
  Sex: Female
  Weight: 62 kg

DRUGS (3)
  1. MAVENCLAD [Suspect]
     Active Substance: CLADRIBINE
     Indication: MULTIPLE SCLEROSIS
     Dosage: FIRST YEAR FIRST WEEK THERAPY: ONE TABLET ON DAYS 1 TO 5.
     Dates: start: 20181217
  2. MAVENCLAD [Suspect]
     Active Substance: CLADRIBINE
     Dosage: FIRST YEAR SECOND WEEK THERAPY: ONE TABLET ON DAYS 1 TO 5.
  3. MAVENCLAD [Suspect]
     Active Substance: CLADRIBINE
     Dosage: SECOND YEAR FIRST WEEK THERAPY

REACTIONS (11)
  - Rash pruritic [Recovering/Resolving]
  - Hypoaesthesia [Unknown]
  - Chills [Recovering/Resolving]
  - Lymphocyte count decreased [Unknown]
  - Tremor [Unknown]
  - Pyrexia [Recovering/Resolving]
  - Joint stiffness [Recovering/Resolving]
  - White blood cell count decreased [Recovering/Resolving]
  - Headache [Recovering/Resolving]
  - Fatigue [Recovering/Resolving]
  - Neutrophil count decreased [Recovering/Resolving]

NARRATIVE: CASE EVENT DATE: 20200113
